FAERS Safety Report 4370476-7 (Version None)
Quarter: 2004Q2

REPORT INFORMATION
  Report Type: 
  Country: None (occurrence: None)
  Receive Date: 20040525
  Receipt Date: 20040513
  Transmission Date: 20050107
  Serious: Yes (Hospitalization)
  Sender: FDA-Public Use
  Company Number: 04H-028-0261007-00

PATIENT
  Age: 49 Year
  Sex: Female
  Weight: 60.782 kg

DRUGS (2)
  1. CALCIUM CHLORIDE [Suspect]
     Indication: HYPOCALCAEMIA
     Dosage: 1 AMPOULE, ONCE,
     Dates: start: 20040506, end: 20040506
  2. CALCIUM CARBONATE [Concomitant]

REACTIONS (2)
  - EXTRAVASATION [None]
  - SKIN DISORDER [None]
